FAERS Safety Report 14448391 (Version 1)
Quarter: 2018Q1

REPORT INFORMATION
  Report Type: Spontaneous
  Country: US (occurrence: US)
  Receive Date: 20180126
  Receipt Date: 20180126
  Transmission Date: 20180509
  Serious: Yes (Hospitalization)
  Sender: FDA-Public Use
  Company Number: None

PATIENT
  Age: 52 Year
  Sex: Female

DRUGS (14)
  1. LONSURF [Suspect]
     Active Substance: TIPIRACIL HYDROCHLORIDE\TRIFLURIDINE
     Indication: COLON CANCER
     Route: 048
     Dates: start: 20171204
  2. CARAFATE [Concomitant]
     Active Substance: SUCRALFATE
  3. ZOFRAN [Concomitant]
     Active Substance: ONDANSETRON HYDROCHLORIDE
  4. ACYCLOVIR. [Concomitant]
     Active Substance: ACYCLOVIR
  5. FENTANYL. [Concomitant]
     Active Substance: FENTANYL
  6. METOPROLOL TARTRATE. [Concomitant]
     Active Substance: METOPROLOL TARTRATE
  7. PREDNISONE. [Concomitant]
     Active Substance: PREDNISONE
  8. EFFEXOR [Concomitant]
     Active Substance: VENLAFAXINE HYDROCHLORIDE
  9. ATIVAN [Concomitant]
     Active Substance: LORAZEPAM
  10. TOUJEO [Concomitant]
     Active Substance: INSULIN GLARGINE
  11. PEPCID [Concomitant]
     Active Substance: FAMOTIDINE
  12. KLONOPIN [Concomitant]
     Active Substance: CLONAZEPAM
  13. BENADRYL [Concomitant]
     Active Substance: DIPHENHYDRAMINE HYDROCHLORIDE
  14. AMBIEN [Concomitant]
     Active Substance: ZOLPIDEM TARTRATE

REACTIONS (3)
  - Dehydration [None]
  - Ill-defined disorder [None]
  - Hospitalisation [None]

NARRATIVE: CASE EVENT DATE: 20180125
